FAERS Safety Report 6488063-3 (Version None)
Quarter: 2009Q4

REPORT INFORMATION
  Report Type: 
  Country: None (occurrence: None)
  Receive Date: 20091210
  Receipt Date: 20091129
  Transmission Date: 20100525
  Serious: Yes (Other)
  Sender: FDA-Public Use
  Company Number: US-PFIZER INC-2009240242

PATIENT
  Sex: Male

DRUGS (2)
  1. SUTENT [Suspect]
     Indication: METASTATIC RENAL CELL CARCINOMA
     Dosage: 50 MG, 1X/DAY
     Dates: start: 20090507, end: 20090711
  2. SUTENT [Suspect]
     Dosage: 37.5 MG, 1X/DAY
     Dates: start: 20090801, end: 20090903

REACTIONS (3)
  - BLOOD PRESSURE FLUCTUATION [None]
  - DECREASED APPETITE [None]
  - WEIGHT DECREASED [None]
